FAERS Safety Report 13506393 (Version 1)
Quarter: 2017Q2

REPORT INFORMATION
  Report Type: Spontaneous
  Country: US (occurrence: US)
  Receive Date: 20170502
  Receipt Date: 20170502
  Transmission Date: 20170830
  Serious: Yes (Other)
  Sender: FDA-Public Use
  Company Number: US-ROCHE-1343070

PATIENT
  Sex: Male

DRUGS (5)
  1. LISINOPRIL. [Suspect]
     Active Substance: LISINOPRIL
     Indication: BLOOD PRESSURE INCREASED
     Route: 065
  2. AVASTIN [Suspect]
     Active Substance: BEVACIZUMAB
     Route: 065
  3. RADIATION THERAPY [Concomitant]
     Active Substance: RADIATION THERAPY
     Route: 065
     Dates: start: 201201, end: 201204
  4. AVASTIN [Suspect]
     Active Substance: BEVACIZUMAB
     Indication: ANAPLASTIC OLIGODENDROGLIOMA
     Route: 065
     Dates: start: 201201, end: 201204
  5. TEMODAR [Concomitant]
     Active Substance: TEMOZOLOMIDE
     Route: 065
     Dates: start: 201201, end: 201204

REACTIONS (6)
  - Drug hypersensitivity [Unknown]
  - Rash generalised [Unknown]
  - Proteinuria [Unknown]
  - Fatigue [Unknown]
  - Blood pressure increased [Unknown]
  - Respiratory tract infection [Unknown]
